FAERS Safety Report 16331321 (Version 1)
Quarter: 2019Q2

REPORT INFORMATION
  Report Type: Spontaneous
  Country: GB (occurrence: GB)
  Receive Date: 20190520
  Receipt Date: 20190520
  Transmission Date: 20190711
  Serious: Yes (Life-Threatening)
  Sender: FDA-Public Use
  Company Number: GB-TEVA-2019-GB-1051248

PATIENT
  Age: 69 Year
  Sex: Female

DRUGS (1)
  1. CO-AMILOZIDE [Suspect]
     Active Substance: AMILORIDE HYDROCHLORIDE\HYDROCHLOROTHIAZIDE
     Indication: PERIPHERAL SWELLING
     Dosage: 5/50
     Route: 048
     Dates: start: 200001, end: 20190320

REACTIONS (2)
  - Squamous cell carcinoma [Recovered/Resolved]
  - Photodermatosis [Recovered/Resolved]

NARRATIVE: CASE EVENT DATE: 201807
